FAERS Safety Report 18867047 (Version 1)
Quarter: 2021Q1

REPORT INFORMATION
  Report Type: Other
  Country: CA (occurrence: CA)
  Receive Date: 20210208
  Receipt Date: 20210208
  Transmission Date: 20210420
  Serious: Yes (Other)
  Sender: FDA-Public Use
  Company Number: CA-CELLTRION INC.-2021CA001362

PATIENT

DRUGS (1)
  1. RITUXIMAB (UNKNOWN) [Suspect]
     Active Substance: RITUXIMAB
     Indication: GLIOMA
     Dosage: 1000 MILLIGRAM, 1 EVERY 2 WEEKS
     Route: 042

REACTIONS (2)
  - Off label use [Unknown]
  - Pneumonia [Unknown]
